FAERS Safety Report 11228459 (Version 1)
Quarter: 2015Q2

REPORT INFORMATION
  Report Type: Report from Study
  Country: KR (occurrence: None)
  Receive Date: 20150626
  Receipt Date: 20150626
  Transmission Date: 20150821
  Serious: Yes (Hospitalization, Other)
  Sender: FDA-Public Use
  Company Number: 2015-11591

PATIENT
  Age: 79 Year
  Sex: Male

DRUGS (1)
  1. EYLEA [Suspect]
     Active Substance: AFLIBERCEPT
     Indication: AGE-RELATED MACULAR DEGENERATION
     Route: 031
     Dates: start: 20141203

REACTIONS (6)
  - Lung cyst [None]
  - Feeling abnormal [None]
  - Product use issue [None]
  - Metamorphopsia [None]
  - Age-related macular degeneration [None]
  - Vision blurred [None]

NARRATIVE: CASE EVENT DATE: 201506
